FAERS Safety Report 7824609-8 (Version None)
Quarter: 2011Q4

REPORT INFORMATION
  Report Type: 
  Country: None (occurrence: None)
  Receive Date: 20111019
  Receipt Date: 20111014
  Transmission Date: 20120403
  Serious: Yes (Hospitalization, Disabling, Other)
  Sender: FDA-Public Use
  Company Number: CA-ABBOTT-11P-028-0848067-00

PATIENT
  Sex: Female
  Weight: 63.56 kg

DRUGS (9)
  1. MIRTAZAPINE [Concomitant]
     Indication: PRODUCT USED FOR UNKNOWN INDICATION
     Route: 048
     Dates: start: 20060101
  2. HUMIRA [Suspect]
     Indication: RHEUMATOID ARTHRITIS
     Route: 058
     Dates: start: 20101005
  3. LEFLUNOMIDE [Concomitant]
     Indication: HYPERTENSION
     Route: 048
     Dates: start: 20090101
  4. MELOXICAM [Concomitant]
     Indication: ARTHRITIS
     Route: 048
  5. HYDROCHLOROTHIAZIDE [Concomitant]
     Indication: HYPERTENSION
     Route: 048
  6. VENLAFAXINE [Concomitant]
     Indication: DEPRESSION
     Route: 048
     Dates: start: 20060101
  7. PERINDOPRIL ERBUMINE [Concomitant]
     Indication: HYPERTENSION
     Route: 048
  8. ZYTRAM-XL [Concomitant]
     Indication: ARTHRITIS
     Route: 048
     Dates: start: 20100901
  9. TRAMADOL HCL [Concomitant]
     Indication: ARTHRITIS
     Route: 048

REACTIONS (4)
  - INTERVERTEBRAL DISC PROTRUSION [None]
  - ABASIA [None]
  - LUMBAR SPINAL STENOSIS [None]
  - CONDITION AGGRAVATED [None]
